FAERS Safety Report 8578254-X (Version None)
Quarter: 2012Q3

REPORT INFORMATION
  Report Type: 
  Country: None (occurrence: None)
  Receive Date: 20120808
  Receipt Date: 20120806
  Transmission Date: 20120928
  Serious: No
  Sender: FDA-Public Use
  Company Number: US-PFIZER INC-2012190379

PATIENT
  Sex: Male

DRUGS (1)
  1. ADVIL CONGESTION RELIEF [Suspect]
     Dosage: 10 MG, UNK
     Route: 048
     Dates: end: 20120101

REACTIONS (1)
  - URTICARIA [None]
